FAERS Safety Report 11937872 (Version 3)
Quarter: 2016Q1

REPORT INFORMATION
  Report Type: Report from Study
  Country: MX (occurrence: MX)
  Receive Date: 20160122
  Receipt Date: 20160218
  Transmission Date: 20160526
  Serious: Yes (Life-Threatening, Hospitalization)
  Sender: FDA-Public Use
  Company Number: MX-ABBVIE-16K-107-1541072-00

PATIENT
  Age: 48 Year
  Sex: Male
  Weight: 91 kg

DRUGS (1)
  1. HUMIRA [Suspect]
     Active Substance: ADALIMUMAB
     Indication: ANKYLOSING SPONDYLITIS
     Route: 058
     Dates: start: 20150724, end: 20160114

REACTIONS (6)
  - Blood triglycerides increased [Recovering/Resolving]
  - Blood glucose increased [Recovered/Resolved]
  - Pancreatitis [Recovered/Resolved]
  - Blood triglycerides increased [Recovered/Resolved]
  - Weight decreased [Recovering/Resolving]
  - Pancreatitis [Recovered/Resolved]

NARRATIVE: CASE EVENT DATE: 20160105
